FAERS Safety Report 6353412 (Version 4)
Quarter: 2024Q3

REPORT INFORMATION
  Report Type: Spontaneous
  Country: SE (occurrence: SE)
  Receive Date: 20070710
  Receipt Date: 20240828
  Transmission Date: 20241016
  Serious: Yes (Other)
  Sender: ROCHE
  Company Number: SE-ROCHE-504662

PATIENT
  Age: 45 Year
  Sex: Female

DRUGS (6)
  1. XELODA [Suspect]
     Active Substance: CAPECITABINE
     Indication: Product used for unknown indication
     Dosage: DOSAGE REGIMEN REPORTED AS ^3.6GMC GM C^.
     Route: 048
     Dates: start: 20060911, end: 20070314
  2. HERCEPTIN [Suspect]
     Active Substance: TRASTUZUMAB
     Indication: Product used for unknown indication
     Dosage: DOSAGE REGIMEN REPORTED AS ^420MGN MG N^.
     Route: 042
     Dates: start: 20060627
  3. ZOMETA [Suspect]
     Active Substance: ZOLEDRONIC ACID
     Indication: Product used for unknown indication
     Dosage: FORMULATION REPORTED AS ^CONCENTRATE FOR SOLUTION FOR INFUSION^. STRENGTH REPORTED AS ^4 MG/5 ML^.?+
     Route: 042
     Dates: start: 20060421, end: 20070403
  4. TAXOTERE [Suspect]
     Active Substance: DOCETAXEL
     Indication: Product used for unknown indication
     Dosage: FORMULATION REPORTED AS ^CONCENTRATE AND SOLVENT FOR SOLUTION FOR INFUSION^.?DOSAGE REGIMEN REPORTE+
     Route: 042
     Dates: start: 20060421, end: 20060628
  5. BETAPRED [Concomitant]
     Active Substance: BETAMETHASONE SODIUM PHOSPHATE
  6. ACETAMINOPHEN [Concomitant]
     Active Substance: ACETAMINOPHEN

REACTIONS (1)
  - Osteonecrosis [Unknown]
